FAERS Safety Report 5493870-X (Version None)
Quarter: 2007Q4

REPORT INFORMATION
  Report Type: 
  Country: None (occurrence: None)
  Receive Date: 20071019
  Receipt Date: 20071011
  Transmission Date: 20080405
  Serious: Yes (Other)
  Sender: FDA-Public Use
  Company Number: 2007RL000449

PATIENT
  Age: 66 Year
  Sex: Male

DRUGS (8)
  1. RYTHMOL [Suspect]
     Indication: DRUG USE FOR UNKNOWN INDICATION
     Dosage: PO; 425 MG; BID; PO
     Route: 048
     Dates: start: 20070901, end: 20071001
  2. RYTHMOL [Suspect]
     Indication: TREMOR
     Dosage: PO; 425 MG; BID; PO
     Route: 048
     Dates: start: 20070901, end: 20071001
  3. RYTHMOL [Suspect]
     Indication: DRUG USE FOR UNKNOWN INDICATION
     Dosage: PO; 425 MG; BID; PO
     Route: 048
     Dates: start: 20040101
  4. RYTHMOL [Suspect]
     Indication: TREMOR
     Dosage: PO; 425 MG; BID; PO
     Route: 048
     Dates: start: 20040101
  5. COUMADIN [Concomitant]
  6. LIPITOR [Concomitant]
  7. AVODART [Concomitant]
  8. FLOMAX [Concomitant]

REACTIONS (4)
  - DRUG INEFFECTIVE [None]
  - OFF LABEL USE [None]
  - THERAPEUTIC RESPONSE UNEXPECTED [None]
  - TREMOR [None]
